FAERS Safety Report 14038743 (Version 1)
Quarter: 2017Q4

REPORT INFORMATION
  Report Type: Spontaneous
  Country: US (occurrence: US)
  Receive Date: 20171004
  Receipt Date: 20171004
  Transmission Date: 20180321
  Serious: No
  Sender: FDA-Public Use
  Company Number: US-BAYER-2017-185898

PATIENT
  Age: 87 Year
  Sex: Male
  Weight: 84 kg

DRUGS (2)
  1. ALEVE [Suspect]
     Active Substance: NAPROXEN SODIUM
     Indication: ARTHRITIS
     Dosage: 1 DF, EVERY 5 DAYS
     Route: 048
     Dates: start: 2016, end: 201709
  2. BAYER LOW DOSE [Suspect]
     Active Substance: ASPIRIN
     Indication: VASCULAR GRAFT
     Dosage: 1 DF, QD
     Route: 048

REACTIONS (4)
  - Rhinitis [Unknown]
  - Product use in unapproved indication [Unknown]
  - Product use in unapproved indication [Recovered/Resolved]
  - Rhinitis [Unknown]

NARRATIVE: CASE EVENT DATE: 201703
